FAERS Safety Report 8405320 (Version 7)
Quarter: 2012Q4

REPORT INFORMATION
  Report Type: 
  Country: US (occurrence: US)
  Receive Date: 20120214
  Receipt Date: 20120907
  Transmission Date: 20130627
  Serious: Yes (Hospitalization, Disabling, Other)
  Sender: FDA-Public Use
  Company Number: US-009507513-1202USA00845

PATIENT

DRUGS (6)
  1. FOSAMAX [Suspect]
     Indication: OSTEOPOROSIS
     Dosage: 10 mg, UNK
     Route: 048
     Dates: start: 20000215
  2. FOSAMAX [Suspect]
     Dosage: 70 mg, UNK
     Route: 048
     Dates: start: 20010315
  3. BONIVA [Suspect]
     Indication: BONE LOSS
     Dosage: 150 mg, UNK
     Route: 048
     Dates: start: 20100325, end: 20110207
  4. BONIVA [Suspect]
     Indication: OSTEOPOROSIS
  5. ALENDRONATE SODIUM [Suspect]
     Indication: OSTEOPOROSIS
     Dosage: 70 mg, UNK
     Route: 048
     Dates: start: 20080407, end: 20100104
  6. PREVACID [Concomitant]
     Dates: start: 1997, end: 2002

REACTIONS (78)
  - Device malfunction [Unknown]
  - Bone density decreased [Unknown]
  - Deep vein thrombosis [Unknown]
  - Deep vein thrombosis [Unknown]
  - Anaemia [Unknown]
  - Cardiac failure [Unknown]
  - Coronary artery bypass [Not Recovered/Not Resolved]
  - Haematoma [Unknown]
  - Rotator cuff syndrome [Recovered/Resolved]
  - Arteriosclerosis coronary artery [Unknown]
  - Bladder disorder [Unknown]
  - Femur fracture [Unknown]
  - Calcium deficiency [Unknown]
  - Weight decreased [Unknown]
  - Vitamin D deficiency [Unknown]
  - Colon adenoma [Unknown]
  - Hypertension [Unknown]
  - Blood cholesterol increased [Unknown]
  - Foot fracture [Recovered/Resolved]
  - Muscle strain [Unknown]
  - Bunion [Unknown]
  - Foot fracture [Unknown]
  - Tenosynovitis [Unknown]
  - Fall [Unknown]
  - Ligament sprain [Recovering/Resolving]
  - Radicular syndrome [Unknown]
  - Hypertriglyceridaemia [Unknown]
  - Stress fracture [Recovering/Resolving]
  - Scoliosis [Unknown]
  - Intervertebral disc degeneration [Unknown]
  - Restless legs syndrome [Unknown]
  - Intervertebral disc protrusion [Unknown]
  - Bronchitis [Unknown]
  - Rhinitis allergic [Unknown]
  - Sinusitis [Not Recovered/Not Resolved]
  - Nail disorder [Unknown]
  - Fatigue [Unknown]
  - Hyperhidrosis [Unknown]
  - Seborrhoeic keratosis [Unknown]
  - Acrochordon [Unknown]
  - Poor quality sleep [Unknown]
  - Actinic keratosis [Not Recovered/Not Resolved]
  - Mitral valve prolapse [Unknown]
  - Onychomycosis [Unknown]
  - Bursitis [Unknown]
  - Rotator cuff syndrome [Unknown]
  - Suture related complication [Unknown]
  - Urinary incontinence [Unknown]
  - Stress urinary incontinence [Unknown]
  - Cystitis [Unknown]
  - Vulvovaginal discomfort [Unknown]
  - Vaginal haemorrhage [Unknown]
  - Influenza like illness [Unknown]
  - Neoplasm malignant [Unknown]
  - Angina pectoris [Unknown]
  - Angina pectoris [Unknown]
  - Urinary tract infection [Not Recovered/Not Resolved]
  - Exostosis [Unknown]
  - Anaemia of chronic disease [Unknown]
  - Lumbar spinal stenosis [Unknown]
  - Dyspareunia [Unknown]
  - Benign neoplasm [Unknown]
  - Infection [Unknown]
  - Abscess [Unknown]
  - Deep vein thrombosis [Unknown]
  - Diverticulum [Unknown]
  - Haemorrhoids [Unknown]
  - Nephrolithiasis [Unknown]
  - Urine output decreased [Unknown]
  - Presyncope [Unknown]
  - Migraine [Unknown]
  - Osteopenia [Unknown]
  - Hypertonic bladder [Unknown]
  - Depression [Unknown]
  - Alopecia [Not Recovered/Not Resolved]
  - Pain in extremity [Unknown]
  - Arthralgia [Unknown]
  - Abdominal pain upper [Unknown]
